FAERS Safety Report 6188158-8 (Version None)
Quarter: 2009Q2

REPORT INFORMATION
  Report Type: 
  Country: None (occurrence: None)
  Receive Date: 20090513
  Receipt Date: 20081104
  Transmission Date: 20091009
  Serious: No
  Sender: FDA-Public Use
  Company Number: A0754997A

PATIENT
  Age: 65 Year
  Sex: Female

DRUGS (5)
  1. DYNACIRC CR [Suspect]
     Indication: HYPERTENSION
     Dosage: 10MG PER DAY
     Route: 048
     Dates: start: 20081025
  2. AVALIDE [Concomitant]
  3. SINGULAIR [Concomitant]
  4. ESTRADIOL [Concomitant]
  5. ALBUTEROL [Concomitant]

REACTIONS (1)
  - DRUG INEFFECTIVE [None]
